FAERS Safety Report 8160278-8 (Version None)
Quarter: 2012Q1

REPORT INFORMATION
  Report Type: 
  Country: None (occurrence: None)
  Receive Date: 20120223
  Receipt Date: 20120223
  Transmission Date: 20120608
  Serious: No
  Sender: FDA-Public Use
  Company Number: None

PATIENT
  Age: 51 Year
  Sex: Male
  Weight: 108.86 kg

DRUGS (2)
  1. BUPRENORPHINE [Suspect]
     Indication: DRUG DEPENDENCE
     Dosage: 2 TABLETS SUBLINGUALLY
     Route: 060
     Dates: start: 20050728, end: 20120222
  2. SUBUTEX [Concomitant]

REACTIONS (3)
  - DENTAL CARIES [None]
  - LOOSE TOOTH [None]
  - TOOTH LOSS [None]
